FAERS Safety Report 20961926 (Version 1)
Quarter: 2022Q2

REPORT INFORMATION
  Report Type: Spontaneous
  Country: US (occurrence: US)
  Receive Date: 20220615
  Receipt Date: 20220615
  Transmission Date: 20220721
  Serious: Yes (Other)
  Sender: FDA-Public Use
  Company Number: US-BAYER-2022A082756

PATIENT
  Age: 40 Year
  Sex: Female

DRUGS (1)
  1. MIRENA [Suspect]
     Active Substance: LEVONORGESTREL
     Indication: Contraception
     Dosage: 20?G/DAY
     Route: 015
     Dates: start: 200610

REACTIONS (4)
  - Pregnancy with contraceptive device [None]
  - Device dislocation [Not Recovered/Not Resolved]
  - Abdominal pain upper [Not Recovered/Not Resolved]
  - Drug ineffective [None]
